FAERS Safety Report 9729975 (Version 3)
Quarter: 2013Q4

REPORT INFORMATION
  Report Type: Report from Study
  Country: IN (occurrence: IN)
  Receive Date: 20131204
  Receipt Date: 20131224
  Transmission Date: 20140711
  Serious: Yes (Hospitalization)
  Sender: FDA-Public Use
  Company Number: PHHY2013IN141145

PATIENT
  Age: 55 Year
  Sex: Female

DRUGS (1)
  1. ACLASTA [Suspect]
     Indication: OSTEOPOROSIS
     Dosage: 5 MG/100ML, PER YEAR
     Route: 042
     Dates: start: 20130511

REACTIONS (2)
  - Road traffic accident [Recovering/Resolving]
  - Spinal fracture [Recovering/Resolving]
